FAERS Safety Report 9307063 (Version 1)
Quarter: 2013Q2

REPORT INFORMATION
  Report Type: Spontaneous
  Country: DE (occurrence: DE)
  Receive Date: 20130523
  Receipt Date: 20130523
  Transmission Date: 20140414
  Serious: Yes (Hospitalization, Other)
  Sender: FDA-Public Use
  Company Number: DE-ELI_LILLY_AND_COMPANY-DE201305004767

PATIENT
  Sex: Male

DRUGS (13)
  1. FORSTEO [Suspect]
     Indication: OSTEOPOROSIS
     Dosage: UNK, QD
     Route: 058
     Dates: start: 201210
  2. DOXEPIN [Concomitant]
     Dosage: UNK, UNKNOWN
     Route: 065
  3. FENTANYL [Concomitant]
     Dosage: UNK, UNKNOWN
     Route: 065
  4. IBUPROFEN [Concomitant]
     Dosage: UNK, UNKNOWN
     Route: 065
  5. KALINOR [Concomitant]
     Dosage: UNK, UNKNOWN
     Route: 065
  6. CEFUROXIM                          /00454602/ [Concomitant]
     Dosage: UNK, UNKNOWN
     Route: 065
  7. LEVODOPA [Concomitant]
     Dosage: UNK, UNKNOWN
     Route: 065
  8. METHOTREXAT [Concomitant]
     Dosage: UNK, UNKNOWN
     Route: 065
  9. MCP [Concomitant]
     Dosage: UNK, UNKNOWN
     Route: 065
  10. NOVAMINSULFON [Concomitant]
     Dosage: UNK, UNKNOWN
     Route: 065
  11. ORAMORPH [Concomitant]
     Dosage: UNK, UNKNOWN
     Route: 065
  12. PRADAXA [Concomitant]
     Dosage: UNK, UNKNOWN
     Route: 065
  13. PREDNISOLONE [Concomitant]
     Dosage: UNK, UNKNOWN
     Route: 065

REACTIONS (2)
  - Sepsis [Recovered/Resolved]
  - Hypokinesia [Recovered/Resolved]
